FAERS Safety Report 20520117 (Version 2)
Quarter: 2022Q1

REPORT INFORMATION
  Report Type: Spontaneous
  Country: BR (occurrence: BR)
  Receive Date: 20220225
  Receipt Date: 20220302
  Transmission Date: 20220423
  Serious: Yes (Death, Hospitalization, Other)
  Sender: FDA-Public Use
  Company Number: BR-JNJFOC-20220252837

PATIENT
  Age: 79 Year
  Sex: Male
  Weight: 52 kg

DRUGS (3)
  1. ZYTIGA [Suspect]
     Active Substance: ABIRATERONE ACETATE
     Indication: Prostate cancer
     Dosage: STARTED AT 14:39 (HH:MM)
     Route: 048
     Dates: start: 20201215, end: 20220214
  2. NIRAPARIB [Suspect]
     Active Substance: NIRAPARIB
     Indication: Prostate cancer
     Dosage: 14:42 (HH:MM), MED KIT NUMBER: 285582.
     Route: 048
     Dates: start: 20201215, end: 20220214
  3. PREDNISONE [Suspect]
     Active Substance: PREDNISONE
     Indication: Prostate cancer
     Dosage: 14:41 (HH:MM),
     Route: 048
     Dates: start: 20201215, end: 20220214

REACTIONS (4)
  - Prostate cancer [Fatal]
  - Hyponatraemia [Recovered/Resolved]
  - Anaemia [Not Recovered/Not Resolved]
  - Altered state of consciousness [Not Recovered/Not Resolved]

NARRATIVE: CASE EVENT DATE: 20220113
